FAERS Safety Report 4526607-9 (Version None)
Quarter: 2004Q4

REPORT INFORMATION
  Report Type: 
  Country: None (occurrence: None)
  Receive Date: 20041213
  Receipt Date: 20041130
  Transmission Date: 20050328
  Serious: Yes (Other)
  Sender: FDA-Public Use
  Company Number: HQWYE727102DEC04

PATIENT
  Sex: Female

DRUGS (3)
  1. RAPAMUNE [Suspect]
     Indication: PANCREAS ISLET CELL TRANSPLANT
     Dosage: 12-15 NG/ML TARGET TROUGH LEVELS;
  2. TACROLIMUS [Suspect]
     Indication: IMMUNOSUPPRESSANT DRUG THERAPY
     Dosage: 3-6 NG/MLTARGET TROUGH LEVELS
  3. TACROLIMUS [Suspect]
     Indication: PANCREAS ISLET CELL TRANSPLANT
     Dosage: 3-6 NG/MLTARGET TROUGH LEVELS

REACTIONS (2)
  - DISEASE RECURRENCE [None]
  - OVARIAN CYST [None]
